FAERS Safety Report 23263493 (Version 1)
Quarter: 2023Q4

REPORT INFORMATION
  Report Type: Spontaneous
  Country: BR (occurrence: None)
  Receive Date: 20231205
  Receipt Date: 20231205
  Transmission Date: 20240109
  Serious: Yes (Life-Threatening, Other)
  Sender: FDA-Public Use
  Company Number: 2023A274920

PATIENT
  Age: 3 Year
  Sex: Female

DRUGS (2)
  1. SYMBICORT [Suspect]
     Active Substance: BUDESONIDE\FORMOTEROL FUMARATE DIHYDRATE
     Indication: Asthma
     Dosage: TWICE A DAY, 2 JETS AT NIGHT AND 2 IN THE MORNING , 6/200MCG
     Route: 055
     Dates: start: 202207
  2. ALBUTEROL [Concomitant]
     Active Substance: ALBUTEROL
     Dosage: DURING CRISIS

REACTIONS (4)
  - Asthmatic crisis [Unknown]
  - Drug ineffective [Unknown]
  - Off label use [Unknown]
  - Product dose omission issue [Unknown]

NARRATIVE: CASE EVENT DATE: 20231129
